FAERS Safety Report 13526828 (Version 1)
Quarter: 2017Q2

REPORT INFORMATION
  Report Type: Spontaneous
  Country: FR (occurrence: FR)
  Receive Date: 20170509
  Receipt Date: 20170509
  Transmission Date: 20170830
  Serious: Yes (Other)
  Sender: FDA-Public Use
  Company Number: FR-FAC-000309

PATIENT
  Age: 69 Year
  Sex: Female

DRUGS (2)
  1. CEFAZOLIN [Suspect]
     Active Substance: CEFAZOLIN
     Route: 065
  2. FLOMOXEF [Suspect]
     Active Substance: FLOMOXEF
     Route: 065

REACTIONS (1)
  - Clostridium bacteraemia [Recovered/Resolved]
